FAERS Safety Report 10653784 (Version 1)
Quarter: 2014Q4

REPORT INFORMATION
  Report Type: Spontaneous
  Country: ES (occurrence: None)
  Receive Date: 20141212
  Receipt Date: 20141212
  Transmission Date: 20150529
  Serious: Yes (Disabling)
  Sender: FDA-Public Use
  Company Number: None

PATIENT
  Sex: Female

DRUGS (3)
  1. MULTIVITAMINS [Concomitant]
     Active Substance: VITAMINS
  2. RISPERDAL [Suspect]
     Active Substance: RISPERIDONE
     Indication: DRUG THERAPY
     Dosage: 2 PILLS  2 DAILY OR 3 TIMES DAILY
     Route: 048
     Dates: start: 2005, end: 200612
  3. OLANZAPINE. [Concomitant]
     Active Substance: OLANZAPINE

REACTIONS (4)
  - Premature menopause [None]
  - Mental disorder [None]
  - Urogenital disorder [None]
  - Sluggishness [None]

NARRATIVE: CASE EVENT DATE: 20060101
